FAERS Safety Report 21348498 (Version 4)
Quarter: 2022Q4

REPORT INFORMATION
  Report Type: Spontaneous
  Country: US (occurrence: US)
  Receive Date: 20220919
  Receipt Date: 20221012
  Transmission Date: 20230113
  Serious: Yes (Hospitalization, Other)
  Sender: FDA-Public Use
  Company Number: US-JNJFOC-20220926720

PATIENT
  Age: 47 Year
  Sex: Male
  Weight: 79.5 kg

DRUGS (5)
  1. VELETRI [Suspect]
     Active Substance: EPOPROSTENOL
     Indication: Pulmonary arterial hypertension
     Dosage: 11/SEP/2022
     Route: 042
  2. OPSUMIT [Concomitant]
     Active Substance: MACITENTAN
  3. ELIQUIS [Concomitant]
     Active Substance: APIXABAN
  4. ADEMPAS [Concomitant]
     Active Substance: RIOCIGUAT
  5. REMODULIN [Concomitant]
     Active Substance: TREPROSTINIL

REACTIONS (13)
  - Hypervolaemia [Unknown]
  - Cardiac disorder [Unknown]
  - Liver disorder [Unknown]
  - Lung disorder [Unknown]
  - Fluid retention [Unknown]
  - Terminal state [Unknown]
  - Atrial flutter [Unknown]
  - Movement disorder [Unknown]
  - Pain [Unknown]
  - Headache [Unknown]
  - Pain in jaw [Unknown]
  - Blood potassium decreased [Unknown]
  - Multiple allergies [Unknown]

NARRATIVE: CASE EVENT DATE: 20220903
